FAERS Safety Report 13593120 (Version 1)
Quarter: 2017Q2

REPORT INFORMATION
  Report Type: Spontaneous
  Country: JP (occurrence: JP)
  Receive Date: 20170530
  Receipt Date: 20170530
  Transmission Date: 20170830
  Serious: Yes (Death)
  Sender: FDA-Public Use
  Company Number: JP-AMGEN-JPNSP2017082631

PATIENT
  Age: 6 Year
  Sex: Male

DRUGS (3)
  1. GRAN [Suspect]
     Active Substance: FILGRASTIM
     Indication: PRODUCT USED FOR UNKNOWN INDICATION
     Dosage: 400 MUG/M2, UNK
     Route: 065
  2. LYMPHOGLOBULINE [Concomitant]
     Active Substance: LAPINE T-LYMPHOCYTE IMMUNE GLOBULIN
     Dosage: 15 MG/KG, UNK
     Route: 042
  3. CICLOSPORIN [Concomitant]
     Active Substance: CYCLOSPORINE
     Dosage: 6 MG/KG, UNK
     Route: 048

REACTIONS (2)
  - Transformation to acute myeloid leukaemia [Fatal]
  - Cytogenetic abnormality [Unknown]
